FAERS Safety Report 4444456-7 (Version None)
Quarter: 2004Q3

REPORT INFORMATION
  Report Type: 
  Country: None (occurrence: None)
  Receive Date: 20040902
  Receipt Date: 20040823
  Transmission Date: 20050211
  Serious: Yes (Hospitalization)
  Sender: FDA-Public Use
  Company Number: HQWYE166726MAR04

PATIENT
  Age: 40 Year
  Sex: Male
  Weight: 109.41 kg

DRUGS (4)
  1. EFFEXOR [Suspect]
     Indication: MAJOR DEPRESSION
     Dosage: 150 MG 1X PER 1 DAY, ORAL
     Route: 048
     Dates: end: 20030421
  2. EFFEXOR [Suspect]
     Indication: MAJOR DEPRESSION
     Dosage: SEE IMAGE
     Route: 048
     Dates: start: 20030422, end: 20030422
  3. EFFEXOR [Suspect]
     Indication: MAJOR DEPRESSION
     Dosage: SEE IMAGE
     Route: 048
     Dates: start: 20030423, end: 20030423
  4. EFFEXOR [Suspect]
     Indication: MAJOR DEPRESSION
     Dosage: SEE IMAGE
     Route: 048
     Dates: start: 20030424, end: 20030425

REACTIONS (16)
  - AGGRESSION [None]
  - AGITATION [None]
  - AKATHISIA [None]
  - ANGER [None]
  - ANXIETY [None]
  - BLOOD PRESSURE INCREASED [None]
  - CONDITION AGGRAVATED [None]
  - DEPRESSION [None]
  - DRUG INEFFECTIVE [None]
  - FEELING JITTERY [None]
  - HEADACHE [None]
  - HOMICIDAL IDEATION [None]
  - NAUSEA [None]
  - SELF-INJURIOUS IDEATION [None]
  - SUICIDAL IDEATION [None]
  - TREMOR [None]
